FAERS Safety Report 12314257 (Version 3)
Quarter: 2016Q2

REPORT INFORMATION
  Report Type: Spontaneous
  Country: US (occurrence: US)
  Receive Date: 20160428
  Receipt Date: 20160504
  Transmission Date: 20160815
  Serious: Yes (Other)
  Sender: FDA-Public Use
  Company Number: US-PFIZER INC-2016228317

PATIENT
  Age: 77 Year
  Sex: Female

DRUGS (39)
  1. VENTOLIN HFA [Concomitant]
     Active Substance: ALBUTEROL SULFATE
     Indication: WHEEZING
     Dosage: 90MCG/PUFF, INHALE 1 PUFF INTO THE LUNGS EVERY 4 HOURS AS NEEDED
  2. NEXIUM [Concomitant]
     Active Substance: ESOMEPRAZOLE MAGNESIUM
     Dosage: 40 MG, 1X/DAY (EVERY MORNING/ BEFORE BREAKFAST)
     Route: 048
  3. ADVAIR HFA [Concomitant]
     Active Substance: FLUTICASONE PROPIONATE\SALMETEROL XINAFOATE
     Dosage: FLUTICASONE PROPIONATE 250/ SALMETEROL XINAFOATE 50 MCG/PUFF, 2X/DAY
  4. VICODIN [Concomitant]
     Active Substance: ACETAMINOPHEN\HYDROCODONE BITARTRATE
     Dosage: HYDROCODONE BITARTRATE 5MG / PARACETAMO, AS NEEDED EVERY FOUR TO SIX HOURS
     Route: 048
  5. FLUTICASONE PROPIONATE. [Concomitant]
     Active Substance: FLUTICASONE PROPIONATE
     Dosage: 50 MCG/ACT SUSPENSION , AS NEEDED
  6. FERROUS SULFATE. [Concomitant]
     Active Substance: FERROUS SULFATE
     Dosage: 325 MG, 2X/DAY (WITH MEAL)
     Route: 048
  7. NORCO [Concomitant]
     Active Substance: ACETAMINOPHEN\HYDROCODONE BITARTRATE
     Dosage: HYDROCODONE BITARTRATE 5MG / PARACETAMOL 325MG, AS NEEDED
     Route: 048
  8. NITROSTAT [Concomitant]
     Active Substance: NITROGLYCERIN
     Indication: CHEST PAIN
     Dosage: 0.4 MG, AS NEEDED
     Route: 060
  9. MELATONIN [Concomitant]
     Active Substance: MELATONIN
     Indication: PAIN
     Dosage: 5 MG, AS NEEDED
  10. LOSARTAN POTASSIUM. [Concomitant]
     Active Substance: LOSARTAN POTASSIUM
     Dosage: 50 MG, DAILY
     Route: 048
  11. PROVENTIL HFA [Concomitant]
     Active Substance: ALBUTEROL SULFATE
     Indication: WHEEZING
     Dosage: UNK, AS NEEDED (90MCG/PUFF)
  12. COREG [Concomitant]
     Active Substance: CARVEDILOL
     Dosage: 3.125 MG, 2X/DAY (WITH MEALS)
     Route: 048
  13. LORTAB [Concomitant]
     Active Substance: ACETAMINOPHEN\HYDROCODONE BITARTRATE
     Dosage: HYDROCODONE BITARTRATE 5MG / PARACETAMOL 325MG , AS NEEDED
     Route: 048
  14. ZESTRIL [Concomitant]
     Active Substance: LISINOPRIL
     Dosage: 40 MG, DAILY
     Route: 048
  15. ZOFRAN-ODT [Concomitant]
     Dosage: 4 MG 1 TAB UNDER TONGUE EVERY 6 HOURS AS NEEDED
     Route: 060
  16. KEFLEX [Concomitant]
     Active Substance: CEPHALEXIN
     Dosage: 500 MG, ONE ORAL AS DIRECTED BY PHYSICIAN
     Route: 048
  17. LYRICA [Concomitant]
     Active Substance: PREGABALIN
     Dosage: TWO 50 MG CAPSULES (100 MG) TWICE A DAY
     Route: 048
  18. IMODIUM AD [Concomitant]
     Active Substance: LOPERAMIDE HYDROCHLORIDE
     Dosage: 2 MG, AS NEEDED
     Route: 048
  19. TRIAMCINOLONE ACETONIDE. [Concomitant]
     Active Substance: TRIAMCINOLONE ACETONIDE
     Indication: STEROID THERAPY
     Dosage: 1 DF, 2X/DAY
  20. ESTRACE [Concomitant]
     Active Substance: ESTRADIOL
     Dosage: 1 G, ONCE PER DAY ON SUNDAY AND THURSDAY
  21. ATIVAN [Concomitant]
     Active Substance: LORAZEPAM
     Indication: ANXIETY
     Dosage: 0.5 MG, AS NEEDED
     Route: 048
  22. CENTRUM [Concomitant]
     Active Substance: VITAMINS
     Dosage: 1 DF, DAILY
     Route: 048
  23. TORSEMIDE. [Concomitant]
     Active Substance: TORSEMIDE
     Dosage: 10 MG, DAILY (1 TABLET DAILY, AS NEEDED)
     Route: 048
  24. PRISTIQ EXTENDED-RELEASE [Suspect]
     Active Substance: DESVENLAFAXINE SUCCINATE
     Dosage: 100 MG, DAILY EVERY MORNING
     Route: 048
  25. PRISTIQ EXTENDED-RELEASE [Suspect]
     Active Substance: DESVENLAFAXINE SUCCINATE
     Dosage: 100 MG, 2X/DAY
     Route: 048
  26. REFRESH TEARS [Concomitant]
     Active Substance: CARBOXYMETHYLCELLULOSE SODIUM
     Dosage: 2 GTT, AS NEEDED
  27. KEFLEX [Concomitant]
     Active Substance: CEPHALEXIN
     Indication: DENTAL CARE
     Dosage: 500 MG, 4X/DAY
     Route: 048
  28. FUROSEMIDE. [Concomitant]
     Active Substance: FUROSEMIDE
     Dosage: 5 MG, AS NEEDED
     Route: 048
  29. ULTRAM [Concomitant]
     Active Substance: TRAMADOL HYDROCHLORIDE
     Indication: PAIN
     Dosage: 50 MG, AS NEEDED
     Route: 048
  30. TRAMADOL HCL [Concomitant]
     Active Substance: TRAMADOL HYDROCHLORIDE
     Dosage: 50 MG, AS NEEDED (ONE ORAL FOUR TIMES DAILY)
     Route: 048
  31. CARVEDILOL. [Concomitant]
     Active Substance: CARVEDILOL
     Dosage: 3.125 MG, 2X/DAY
     Route: 048
  32. ADVAIR DISKUS [Concomitant]
     Active Substance: FLUTICASONE PROPIONATE\SALMETEROL XINAFOATE
     Dosage: 250-50 MCG/DOSE , 2X/DAY
  33. XALATAN [Concomitant]
     Active Substance: LATANOPROST
     Dosage: 1 GTT, 1X/DAY (NIGHTLY AT BEDTIME, RIGHT EYE)
  34. PRINIVIL [Concomitant]
     Active Substance: LISINOPRIL
     Dosage: 40 MG, DAILY
     Route: 048
  35. CRESTOR [Concomitant]
     Active Substance: ROSUVASTATIN CALCIUM
     Dosage: 20 MG, DAILY (ONE TABLET ORAL DAILY)
     Route: 048
  36. FOSAMAX [Concomitant]
     Active Substance: ALENDRONATE SODIUM
     Dosage: 70 MG, WEEKLY
     Route: 048
  37. FUROSEMIDE. [Concomitant]
     Active Substance: FUROSEMIDE
     Dosage: 10 MG, AS NEEDED
     Route: 048
  38. THERAGRAN-M [Concomitant]
     Active Substance: VITAMINS
     Dosage: 1 DF, DAILY
     Route: 048
  39. LISINOPRIL. [Concomitant]
     Active Substance: LISINOPRIL
     Dosage: 40 MG, DAILY (1 TABLET )
     Route: 048

REACTIONS (13)
  - Carpal tunnel syndrome [Unknown]
  - Gravitational oedema [Unknown]
  - Liver function test increased [Unknown]
  - Hypotension [Unknown]
  - Chest pain [Unknown]
  - Leukocytosis [Unknown]
  - Hypokalaemia [Unknown]
  - Acute kidney injury [Unknown]
  - Osteoarthritis [Unknown]
  - Osteoporosis [Unknown]
  - Depression [Unknown]
  - Thrombocytopenia [Unknown]
  - Hypermagnesaemia [Unknown]
